FAERS Safety Report 6146288-0 (Version None)
Quarter: 2009Q2

REPORT INFORMATION
  Report Type: 
  Country: None (occurrence: None)
  Receive Date: 20090403
  Receipt Date: 20090403
  Transmission Date: 20091009
  Serious: No
  Sender: FDA-Public Use
  Company Number: None

PATIENT
  Sex: Male
  Weight: 85 kg

DRUGS (1)
  1. CISPLATIN [Suspect]
     Dosage: 394 MG
     Dates: end: 20090317

REACTIONS (1)
  - LYMPHOPENIA [None]
